FAERS Safety Report 9319389 (Version 1)
Quarter: 2013Q2

REPORT INFORMATION
  Report Type: Spontaneous
  Country: US (occurrence: None)
  Receive Date: 20130524
  Receipt Date: 20130524
  Transmission Date: 20140414
  Serious: Yes (Hospitalization)
  Sender: FDA-Public Use
  Company Number: 1724606

PATIENT
  Age: 9 Year
  Sex: Female

DRUGS (3)
  1. (VINCRISTINE SULFATE) [Suspect]
     Indication: BURKITT^S LYMPHOMA
  2. CYCLOPHOSPHAMIDE [Suspect]
     Indication: BURKITT^S LYMPHOMA
  3. PREDNISONE [Suspect]

REACTIONS (10)
  - Hypertension [None]
  - Headache [None]
  - Photophobia [None]
  - Unresponsive to stimuli [None]
  - Gaze palsy [None]
  - Posture abnormal [None]
  - Hemiparesis [None]
  - Convulsion [None]
  - Nuclear magnetic resonance imaging brain abnormal [None]
  - Posterior reversible encephalopathy syndrome [None]
